FAERS Safety Report 6675811-2 (Version None)
Quarter: 2010Q2

REPORT INFORMATION
  Report Type: 
  Country: None (occurrence: None)
  Receive Date: 20100412
  Receipt Date: 20100401
  Transmission Date: 20101027
  Serious: Yes (Life-Threatening, Hospitalization)
  Sender: FDA-Public Use
  Company Number: JP-BIOGENIDEC-2008BI019384

PATIENT
  Age: 46 Year
  Sex: Female

DRUGS (3)
  1. AVONEX [Suspect]
     Indication: SECONDARY PROGRESSIVE MULTIPLE SCLEROSIS
     Route: 030
     Dates: start: 20080318, end: 20081013
  2. AVONEX [Suspect]
     Route: 030
     Dates: start: 20090105
  3. PREDNISOLONE [Concomitant]
     Indication: DRUG USE FOR UNKNOWN INDICATION
     Dates: start: 20080111, end: 20080404

REACTIONS (8)
  - ALTERED STATE OF CONSCIOUSNESS [None]
  - BRAIN CONTUSION [None]
  - CEREBRAL ATROPHY [None]
  - MUSCULAR WEAKNESS [None]
  - PYREXIA [None]
  - ROAD TRAFFIC ACCIDENT [None]
  - TRAUMATIC INTRACRANIAL HAEMORRHAGE [None]
  - WOUND [None]
